FAERS Safety Report 6416145-0 (Version None)
Quarter: 2009Q4

REPORT INFORMATION
  Report Type: 
  Country: None (occurrence: None)
  Receive Date: 20091022
  Receipt Date: 20091012
  Transmission Date: 20100525
  Serious: Yes (Other)
  Sender: FDA-Public Use
  Company Number: 2009AL006194

PATIENT
  Sex: Female
  Weight: 3.7 kg

DRUGS (2)
  1. CITALOPRAM HYDROBROMIDE [Suspect]
     Indication: DRUG EXPOSURE DURING PREGNANCY
     Dosage: 10 MG; QD; TRPL
     Route: 064
     Dates: end: 20090826
  2. FOLIC ACID [Concomitant]

REACTIONS (2)
  - MATERNAL DRUGS AFFECTING FOETUS [None]
  - SCAN ABNORMAL [None]
